FAERS Safety Report 7796849-8 (Version None)
Quarter: 2011Q4

REPORT INFORMATION
  Report Type: 
  Country: None (occurrence: None)
  Receive Date: 20111003
  Receipt Date: 20110915
  Transmission Date: 20120403
  Serious: Yes (Hospitalization, Disabling, Other)
  Sender: FDA-Public Use
  Company Number: INT_00027_2011

PATIENT
  Age: 60 Year
  Sex: Female

DRUGS (9)
  1. FENTANYL [Concomitant]
  2. CIPROFLOXACIN [Suspect]
     Indication: PRODUCT USED FOR UNKNOWN INDICATION
     Dosage: 400 MG QD INTRAVENOUS
     Route: 042
  3. METRONIDAZOLE [Concomitant]
  4. CEFOXITIN [Suspect]
     Indication: PRODUCT USED FOR UNKNOWN INDICATION
     Dosage: 2G PARENTERAL, 1 G 1X/12 HOURS INTRAVENOUS
     Route: 042
  5. CEFOXITIN [Suspect]
     Indication: PRODUCT USED FOR UNKNOWN INDICATION
     Dosage: 2G PARENTERAL, 1 G 1X/12 HOURS INTRAVENOUS
     Route: 042
  6. CINACALCET [Concomitant]
  7. MORPHINE [Concomitant]
  8. METOCLOPRAMIDE [Concomitant]
  9. MIDAZOLAM HCL [Concomitant]

REACTIONS (15)
  - NEUROTOXICITY [None]
  - SCREAMING [None]
  - TACHYCARDIA [None]
  - DIET REFUSAL [None]
  - DELIRIUM [None]
  - HYPERTENSION [None]
  - HAEMODIALYSIS [None]
  - FEAR [None]
  - TREMOR [None]
  - CATATONIA [None]
  - BLOOD UREA INCREASED [None]
  - MYOCLONUS [None]
  - PARANOIA [None]
  - LOCKED-IN SYNDROME [None]
  - BLOOD CREATININE INCREASED [None]
